FAERS Safety Report 20633793 (Version 1)
Quarter: 2022Q1

REPORT INFORMATION
  Report Type: Report from Study
  Country: JP (occurrence: JP)
  Receive Date: 20220324
  Receipt Date: 20220324
  Transmission Date: 20220423
  Serious: Yes (Other)
  Sender: FDA-Public Use
  Company Number: JP-TAKEDA-2022TJP030829AA

PATIENT
  Age: 63 Year

DRUGS (4)
  1. LEUPROLIDE ACETATE [Suspect]
     Active Substance: LEUPROLIDE ACETATE
     Indication: Bulbospinal muscular atrophy congenital
     Dosage: 11.25 MILLIGRAM, Q3MONTHS
     Route: 058
     Dates: start: 20190530
  2. MUCOSAL [Concomitant]
     Indication: Bulbospinal muscular atrophy congenital
     Dosage: 45 MILLIGRAM
     Route: 065
  3. CARBOCYSTEINE [Concomitant]
     Active Substance: CARBOCYSTEINE
     Indication: Bulbospinal muscular atrophy congenital
     Dosage: 1500 MILLIGRAM
     Route: 065
  4. HERBALS [Concomitant]
     Active Substance: HERBALS
     Indication: Bulbospinal muscular atrophy congenital
     Dosage: 7.5 GRAM
     Route: 065
     Dates: start: 20190323

REACTIONS (16)
  - Suicidal behaviour [Unknown]
  - Pituitary apoplexy [Unknown]
  - Diabetes mellitus [Unknown]
  - Interstitial lung disease [Unknown]
  - Embolism [Unknown]
  - Cardiac failure [Unknown]
  - Anaphylactic reaction [Unknown]
  - Lipid metabolism disorder [Unknown]
  - Adverse event [Unknown]
  - Injection site reaction [Unknown]
  - Bone density decreased [Unknown]
  - Depression [Unknown]
  - Hepatic function abnormal [Unknown]
  - Jaundice [Unknown]
  - Male sexual dysfunction [Unknown]
  - Hypertension [Unknown]
